FAERS Safety Report 7090308-6 (Version None)
Quarter: 2010Q4

REPORT INFORMATION
  Report Type: 
  Country: None (occurrence: None)
  Receive Date: 20101109
  Receipt Date: 20101029
  Transmission Date: 20110411
  Serious: Yes (Other)
  Sender: FDA-Public Use
  Company Number: US-JNJFOC-20100801386

PATIENT
  Sex: Female
  Weight: 113.4 kg

DRUGS (11)
  1. DURAGESIC-100 [Suspect]
     Indication: BACK PAIN
     Route: 062
  2. DURAGESIC-100 [Suspect]
     Route: 062
  3. FEMHRT [Concomitant]
     Indication: HORMONE REPLACEMENT THERAPY
     Route: 048
  4. PEPCID [Concomitant]
     Indication: GASTROOESOPHAGEAL REFLUX DISEASE
     Route: 048
  5. NEURONTIN [Concomitant]
     Indication: NERVE INJURY
     Route: 048
  6. NEURONTIN [Concomitant]
     Indication: BONE PAIN
     Route: 048
  7. GLYBURIDE [Concomitant]
     Indication: DIABETES MELLITUS
     Route: 048
  8. KLONOPIN [Concomitant]
     Indication: NERVE INJURY
     Route: 048
  9. PERCOCET [Concomitant]
     Indication: BREAKTHROUGH PAIN
     Dosage: 10/325MG 4 TIMES AS NEEDED
     Route: 048
  10. METHADONE HCL [Concomitant]
     Indication: BACK INJURY
     Route: 048
  11. ZOCOR [Concomitant]
     Indication: BLOOD CHOLESTEROL ABNORMAL
     Route: 048

REACTIONS (13)
  - APPLICATION SITE BURN [None]
  - APPLICATION SITE SCAR [None]
  - APPLICATION SITE VESICLES [None]
  - ASTHMA [None]
  - BACK PAIN [None]
  - BLOOD COUNT ABNORMAL [None]
  - CONDITION AGGRAVATED [None]
  - EAR DISCOMFORT [None]
  - INSOMNIA [None]
  - MENIERE'S DISEASE [None]
  - NAUSEA [None]
  - PRODUCT ADHESION ISSUE [None]
  - WRONG TECHNIQUE IN DRUG USAGE PROCESS [None]
